FAERS Safety Report 8010290-4 (Version None)
Quarter: 2011Q4

REPORT INFORMATION
  Report Type: 
  Country: None (occurrence: None)
  Receive Date: 20111221
  Receipt Date: 20111208
  Transmission Date: 20120403
  Serious: Yes (Life-Threatening)
  Sender: FDA-Public Use
  Company Number: WAES 1112USA01159

PATIENT
  Age: 6 Year
  Sex: Male
  Weight: 34.927 kg

DRUGS (2)
  1. DECADRON [Suspect]
     Indication: CENTRAL NERVOUS SYSTEM NEOPLASM
  2. TAB MK-2206 UNK [Suspect]
     Indication: CENTRAL NERVOUS SYSTEM NEOPLASM
     Dosage: 45 MG/M[2]/QOD/PO
     Route: 048
     Dates: start: 20111110, end: 20111206

REACTIONS (1)
  - LYMPHOPENIA [None]
